FAERS Safety Report 16572536 (Version 1)
Quarter: 2019Q3

REPORT INFORMATION
  Report Type: Spontaneous
  Country: US (occurrence: US)
  Receive Date: 20190531
  Receipt Date: 20190531
  Transmission Date: 20191004
  Serious: Yes (Death, Hospitalization)
  Sender: FDA-Public Use
  Company Number: None

PATIENT
  Age: 76 Year
  Sex: Female
  Weight: 63.4 kg

DRUGS (1)
  1. NALOXEGOL OXALATE. [Suspect]
     Active Substance: NALOXEGOL OXALATE
     Dates: end: 20190515

REACTIONS (6)
  - Urinary tract infection [None]
  - Escherichia test positive [None]
  - Respiratory failure [None]
  - Cardiac failure congestive [None]
  - General physical health deterioration [None]
  - Streptococcus test positive [None]

NARRATIVE: CASE EVENT DATE: 20190518
